FAERS Safety Report 8954733 (Version 2)
Quarter: 2013Q1

REPORT INFORMATION
  Report Type: Report from Study
  Country: JP (occurrence: JP)
  Receive Date: 20121210
  Receipt Date: 20130214
  Transmission Date: 20140127
  Serious: Yes (Hospitalization, Other)
  Sender: FDA-Public Use
  Company Number: PHHY2012JP069699

PATIENT
  Sex: 0
  Weight: 55 kg

DRUGS (12)
  1. AFINITOR [Suspect]
     Indication: METASTATIC RENAL CELL CARCINOMA
     Dosage: 10 MG, DAILY
     Route: 048
     Dates: start: 20120215, end: 20120414
  2. BLOPRESS [Concomitant]
     Route: 048
     Dates: start: 20090314, end: 20120413
  3. PREDNISOLONE [Concomitant]
     Indication: METASTATIC RENAL CELL CARCINOMA
     Route: 048
     Dates: start: 20090302
  4. MUCOSTA [Concomitant]
     Route: 048
     Dates: start: 20090302, end: 20120413
  5. ALEVIATIN [Concomitant]
     Indication: METASTATIC RENAL CELL CARCINOMA
     Route: 048
     Dates: start: 20090528
  6. MAGLAX [Concomitant]
     Route: 048
     Dates: start: 20090623
  7. TENORMIN [Concomitant]
     Route: 048
     Dates: start: 20110725
  8. GASTER D [Concomitant]
     Route: 048
     Dates: start: 20060327
  9. AMLODIN [Concomitant]
     Route: 048
     Dates: start: 20110725, end: 20120413
  10. DEPAS [Concomitant]
     Route: 048
     Dates: start: 20111212
  11. LENDORMIN [Concomitant]
     Route: 048
     Dates: start: 20090331
  12. OXYCONTIN [Concomitant]
     Indication: METASTATIC RENAL CELL CARCINOMA
     Route: 048
     Dates: start: 20111005, end: 20120413

REACTIONS (13)
  - Blood lactate dehydrogenase increased [Unknown]
  - Anaemia [Recovering/Resolving]
  - Pulmonary congestion [Recovering/Resolving]
  - Cardiac failure congestive [Recovering/Resolving]
  - Fatigue [Recovering/Resolving]
  - Pulmonary oedema [Recovering/Resolving]
  - Nausea [Recovering/Resolving]
  - Decreased appetite [Recovering/Resolving]
  - C-reactive protein increased [Unknown]
  - Gamma-glutamyltransferase increased [Unknown]
  - Aspartate aminotransferase increased [Unknown]
  - Blood glucose increased [Unknown]
  - Blood alkaline phosphatase increased [Unknown]
